FAERS Safety Report 11009540 (Version 2)
Quarter: 2015Q4

REPORT INFORMATION
  Report Type: Report from Study
  Country: BE (occurrence: BE)
  Receive Date: 20150410
  Receipt Date: 20151111
  Transmission Date: 20160304
  Serious: Yes (Hospitalization)
  Sender: FDA-Public Use
  Company Number: BE-ACTELION-A-CH2015-114442

PATIENT
  Age: 77 Year
  Sex: Female
  Weight: 78 kg

DRUGS (17)
  1. BURINEX [Concomitant]
     Active Substance: BUMETANIDE
     Dosage: 12.5 MG, UNK
     Dates: start: 20120328
  2. MOVICOL [Concomitant]
     Active Substance: POLYETHYLENE GLYCOL 3350\POTASSIUM CHLORIDE\SODIUM BICARBONATE\SODIUM CHLORIDE
  3. MACITENTAN [Suspect]
     Active Substance: MACITENTAN
     Indication: PULMONARY HYPERTENSION
     Dosage: 10 MG, QD
     Route: 048
     Dates: start: 20150106
  4. CANDESARTAN [Concomitant]
     Active Substance: CANDESARTAN
     Dosage: 4 MG, UNK
  5. XANAX [Concomitant]
     Active Substance: ALPRAZOLAM
     Dosage: 0.25 UNK, PRN
  6. EMCONCOR [Concomitant]
     Active Substance: BISOPROLOL FUMARATE
     Dosage: 1.25 MG, UNK
  7. AMLOR [Concomitant]
     Active Substance: AMLODIPINE BESYLATE
  8. MARCOUMAR [Concomitant]
     Active Substance: PHENPROCOUMON
  9. MOTILIUM [Concomitant]
     Active Substance: DOMPERIDONE
  10. STILNOX [Concomitant]
     Active Substance: ZOLPIDEM TARTRATE
  11. BURINEX [Concomitant]
     Active Substance: BUMETANIDE
     Dosage: 10 MG, UNK
     Dates: start: 20150329
  12. INSULIN ASPART [Concomitant]
     Active Substance: INSULIN ASPART
     Dosage: 16 IE/ML, BID
  13. DAFALGAN [Concomitant]
     Active Substance: ACETAMINOPHEN
  14. BURINEX [Concomitant]
     Active Substance: BUMETANIDE
     Dosage: 2.5 MG, UNK
  15. BURINEX [Concomitant]
     Active Substance: BUMETANIDE
     Dosage: 7.5 MG, UNK
  16. GLUCOPHAGE [Concomitant]
     Active Substance: METFORMIN HYDROCHLORIDE
     Dosage: 850 UNK, TID
  17. TAMBOCOR [Concomitant]
     Active Substance: FLECAINIDE ACETATE

REACTIONS (11)
  - Weight increased [Recovered/Resolved]
  - Blood urea increased [Recovered/Resolved]
  - Dyspnoea [Recovered/Resolved]
  - Malaise [Recovered/Resolved]
  - PO2 decreased [Recovered/Resolved]
  - Renal impairment [Recovered/Resolved]
  - Blood creatinine increased [Recovered/Resolved]
  - Crepitations [Recovered/Resolved]
  - Oedema peripheral [Recovered/Resolved]
  - Pulmonary oedema [Recovered/Resolved]
  - Cardiorenal syndrome [Recovered/Resolved]

NARRATIVE: CASE EVENT DATE: 20150309
